FAERS Safety Report 11784450 (Version 2)
Quarter: 2016Q1

REPORT INFORMATION
  Report Type: Report from Study
  Country: US (occurrence: US)
  Receive Date: 20151129
  Receipt Date: 20160111
  Transmission Date: 20160525
  Serious: Yes (Other)
  Sender: FDA-Public Use
  Company Number: US-009507513-1511USA015084

PATIENT

DRUGS (2)
  1. CARFILZOMIB [Suspect]
     Active Substance: CARFILZOMIB
     Indication: ACUTE LEUKAEMIA
     Dosage: OVER 30 MINUTES ON DAYS 1, 2,8,9,15,16 EVERY 28 DAYS, FOR 8 CYCLES
     Dates: start: 2015
  2. HEXADROL [Suspect]
     Active Substance: DEXAMETHASONE
     Indication: ACUTE LEUKAEMIA
     Dosage: 20 MG/M2, UNK
     Dates: start: 2015

REACTIONS (1)
  - Hypoxia [Unknown]

NARRATIVE: CASE EVENT DATE: 2015
